FAERS Safety Report 14480408 (Version 1)
Quarter: 2018Q1

REPORT INFORMATION
  Report Type: Spontaneous
  Country: US (occurrence: US)
  Receive Date: 20180201
  Receipt Date: 20180201
  Transmission Date: 20180509
  Serious: No
  Sender: FDA-Public Use
  Company Number: None

PATIENT
  Age: 61 Year
  Sex: Female

DRUGS (1)
  1. CAPECTABINE TAB 500MG [Suspect]
     Active Substance: CAPECITABINE
     Route: 048

REACTIONS (5)
  - Palmar-plantar erythrodysaesthesia syndrome [None]
  - Muscle spasms [None]
  - Fatigue [None]
  - Dry eye [None]
  - Rhinorrhoea [None]

NARRATIVE: CASE EVENT DATE: 20171001
